FAERS Safety Report 7235199-5 (Version None)
Quarter: 2011Q1

REPORT INFORMATION
  Report Type: 
  Country: None (occurrence: None)
  Receive Date: 20110120
  Receipt Date: 20110112
  Transmission Date: 20110831
  Serious: Yes (Hospitalization, Other)
  Sender: FDA-Public Use
  Company Number: CH-BRISTOL-MYERS SQUIBB COMPANY-15485410

PATIENT
  Age: 66 Year
  Sex: Male

DRUGS (5)
  1. PROPOFOL [Suspect]
     Dates: start: 20100915, end: 20100925
  2. ASPIRIN [Concomitant]
     Route: 048
  3. PRAVASTATIN [Suspect]
     Indication: CEREBROVASCULAR ACCIDENT
     Dates: start: 20100701, end: 20100923
  4. EFFIENT [Concomitant]
     Route: 048
     Dates: start: 20100915
  5. HEPARIN [Concomitant]

REACTIONS (6)
  - LACTIC ACIDOSIS [None]
  - CARDIOGENIC SHOCK [None]
  - RHABDOMYOLYSIS [None]
  - METABOLIC ENCEPHALOPATHY [None]
  - ACUTE MYOCARDIAL INFARCTION [None]
  - RENAL IMPAIRMENT [None]
